FAERS Safety Report 9882956 (Version 1)
Quarter: 2014Q1

REPORT INFORMATION
  Report Type: Spontaneous
  Country: US (occurrence: None)
  Receive Date: 20140205
  Receipt Date: 20140205
  Transmission Date: 20141002
  Serious: Yes (Hospitalization)
  Sender: FDA-Public Use
  Company Number: 2013P1020487

PATIENT
  Age: 70 Year
  Sex: Female
  Weight: 92.08 kg

DRUGS (23)
  1. NEURONTIN [Concomitant]
  2. GLIMEPIRIDE [Concomitant]
  3. LEVOTHYROXINE [Concomitant]
  4. MOBIC [Concomitant]
  5. METOPROLOL [Concomitant]
  6. DILTIAZEM HCL [Suspect]
     Indication: ATRIAL FIBRILLATION
     Route: 042
     Dates: start: 20130825, end: 20130825
  7. MICRO-K 10 [Concomitant]
  8. RAMIPRIL [Concomitant]
  9. TRAZODONE [Concomitant]
  10. FISH OIL [Concomitant]
  11. AMBIEN [Concomitant]
  12. ACETAMINOPHEN [Concomitant]
  13. ALLOPURINOL [Concomitant]
  14. VITAMIN C [Concomitant]
  15. LIPITOR [Concomitant]
  16. SINEMET [Concomitant]
  17. KLONOPIN [Concomitant]
  18. PRADAXA [Concomitant]
  19. ENABLEX [Concomitant]
  20. DILTIAZEM [Concomitant]
  21. CYMBALTA [Concomitant]
  22. FOLIC ACID [Concomitant]
  23. LASIX [Concomitant]

REACTIONS (2)
  - Drug ineffective [None]
  - Blood thyroid stimulating hormone decreased [None]
